FAERS Safety Report 9775034 (Version 1)
Quarter: 2013Q4

REPORT INFORMATION
  Report Type: Spontaneous
  Country: US (occurrence: US)
  Receive Date: 20131220
  Receipt Date: 20131220
  Transmission Date: 20140711
  Serious: No
  Sender: FDA-Public Use
  Company Number: US-GLAXOSMITHKLINE-A1041037A

PATIENT
  Sex: Male

DRUGS (8)
  1. AVODART [Suspect]
     Indication: BENIGN PROSTATIC HYPERPLASIA
     Dosage: .5MG PER DAY
     Dates: start: 20130401
  2. CRESTOR [Concomitant]
  3. DIOVAN [Concomitant]
  4. LEVOTHYROXINE [Concomitant]
  5. IBUPROFEN [Concomitant]
  6. XANAX [Concomitant]
  7. VITAMIN [Concomitant]
  8. CIALIS [Concomitant]

REACTIONS (3)
  - Libido decreased [Unknown]
  - Anorgasmia [Unknown]
  - Drug interaction [Unknown]
